FAERS Safety Report 9715725 (Version 1)
Quarter: 2013Q4

REPORT INFORMATION
  Report Type: Report from Study
  Country: US (occurrence: US)
  Receive Date: 20131127
  Receipt Date: 20131127
  Transmission Date: 20140711
  Serious: Yes (Other)
  Sender: FDA-Public Use
  Company Number: US-ROCHE-1305575

PATIENT
  Age: 16 Year
  Sex: Male
  Weight: 48.5 kg

DRUGS (5)
  1. NUTROPIN AQ [Suspect]
     Indication: GROWTH HORMONE DEFICIENCY
     Route: 058
     Dates: end: 20131002
  2. NUTROPIN AQ [Suspect]
     Route: 058
     Dates: start: 20131002
  3. NUTROPIN AQ [Suspect]
     Route: 065
     Dates: start: 2009
  4. PENTASA [Concomitant]
     Indication: CROHN^S DISEASE
     Dosage: 6 TABS
     Route: 048
  5. ENTOCORT [Concomitant]
     Indication: CROHN^S DISEASE
     Route: 048

REACTIONS (2)
  - Growth retardation [Unknown]
  - Acne [Unknown]
